FAERS Safety Report 5382881-0 (Version None)
Quarter: 2007Q3

REPORT INFORMATION
  Report Type: 
  Country: None (occurrence: None)
  Receive Date: 20070703
  Receipt Date: 20070703
  Transmission Date: 20080115
  Serious: No
  Sender: FDA-Public Use
  Company Number: None

PATIENT
  Age: 58 Year
  Sex: Male
  Weight: 90.7194 kg

DRUGS (1)
  1. REQUIP [Suspect]
     Indication: RESTLESS LEGS SYNDROME
     Dosage: 1MG 5 TIMES PER DAY PO
     Route: 048
     Dates: start: 20030501, end: 20070702

REACTIONS (2)
  - ECONOMIC PROBLEM [None]
  - PATHOLOGICAL GAMBLING [None]
